FAERS Safety Report 4700893-4 (Version None)
Quarter: 2005Q2

REPORT INFORMATION
  Report Type: 
  Country: None (occurrence: None)
  Receive Date: 20050624
  Receipt Date: 20050614
  Transmission Date: 20051028
  Serious: No
  Sender: FDA-Public Use
  Company Number: 05H-062-0299737-00

PATIENT
  Age: 13 Year
  Sex: Male

DRUGS (2)
  1. HEPARIN SODIUM [Suspect]
     Indication: ANTICOAGULANT THERAPY
     Dosage: 2000 UNIT, INTRAVENOUS; SEE IMAGE
     Route: 042
  2. RANDOM-DONOR PLATELETS (PLATELETS, HUMAN BLOOD) [Concomitant]

REACTIONS (6)
  - DEEP VEIN THROMBOSIS [None]
  - HEMIPLEGIA TRANSIENT [None]
  - HEPARIN-INDUCED THROMBOCYTOPENIA [None]
  - IMPLANT SITE THROMBOSIS [None]
  - OEDEMA PERIPHERAL [None]
  - SUBCLAVIAN VEIN THROMBOSIS [None]
